FAERS Safety Report 16244848 (Version 1)
Quarter: 2019Q2

REPORT INFORMATION
  Report Type: Spontaneous
  Country: BR (occurrence: BR)
  Receive Date: 20190426
  Receipt Date: 20190426
  Transmission Date: 20190711
  Serious: Yes (Other)
  Sender: FDA-Public Use
  Company Number: BR-BAYER-2019-078816

PATIENT
  Age: 54 Year
  Sex: Female

DRUGS (1)
  1. CIPRO [Suspect]
     Active Substance: CIPROFLOXACIN HYDROCHLORIDE
     Indication: ROOT CANAL INFECTION
     Dosage: 500 MG, QD
     Route: 048
     Dates: start: 20190411, end: 20190416

REACTIONS (5)
  - Gingival erythema [None]
  - Oral discharge [None]
  - Mouth swelling [None]
  - Rash macular [Not Recovered/Not Resolved]
  - Tooth disorder [None]

NARRATIVE: CASE EVENT DATE: 20190411
